FAERS Safety Report 11297591 (Version 1)
Quarter: 2015Q3

REPORT INFORMATION
  Report Type: Spontaneous
  Country: US (occurrence: US)
  Receive Date: 20150722
  Receipt Date: 20150722
  Transmission Date: 20151125
  Serious: No
  Sender: FDA-Public Use
  Company Number: US-ELI_LILLY_AND_COMPANY-US200810000687

PATIENT
  Sex: Male

DRUGS (7)
  1. HUMATROPE [Suspect]
     Active Substance: SOMATROPIN
     Dosage: 2.6 MG, UNK
     Dates: start: 20070202, end: 20070607
  2. HUMATROPE [Suspect]
     Active Substance: SOMATROPIN
     Dosage: 2.5 MG, UNK
     Dates: start: 20060629, end: 2006
  3. HUMATROPE [Suspect]
     Active Substance: SOMATROPIN
     Dosage: 2.1 MG, UNK
     Dates: start: 2006, end: 20061013
  4. HUMATROPE [Suspect]
     Active Substance: SOMATROPIN
     Dosage: 2.5 MG, UNK
     Dates: start: 20061013, end: 20070202
  5. HUMATROPE [Suspect]
     Active Substance: SOMATROPIN
     Dosage: 2.8 MG, UNK
     Dates: start: 20070607, end: 20071004
  6. HUMATROPE [Suspect]
     Active Substance: SOMATROPIN
     Dosage: 3.1 MG, UNK
     Dates: start: 20071004
  7. LETROZOLE. [Concomitant]
     Active Substance: LETROZOLE
     Indication: GROWTH RETARDATION
     Dosage: 2.5 MG, UNK
     Dates: start: 20050304

REACTIONS (1)
  - Oedema peripheral [Recovered/Resolved]

NARRATIVE: CASE EVENT DATE: 2006
